FAERS Safety Report 9493685 (Version 2)
Quarter: 2014Q1

REPORT INFORMATION
  Report Type: Spontaneous
  Country: GB (occurrence: GB)
  Receive Date: 20130902
  Receipt Date: 20140129
  Transmission Date: 20141002
  Serious: Yes (Death, Hospitalization, Other)
  Sender: FDA-Public Use
  Company Number: GB-JNJFOC-20130815752

PATIENT
  Age: 94 Year
  Sex: Female
  Weight: 48.1 kg

DRUGS (6)
  1. XARELTO [Suspect]
     Indication: DEEP VEIN THROMBOSIS
     Route: 048
  2. NITROFURANTOIN [Concomitant]
     Route: 065
  3. LEVOTHYROXINE [Concomitant]
     Route: 065
  4. OMEPRAZOLE [Concomitant]
     Route: 065
  5. CALCICHEW [Concomitant]
     Route: 065
  6. FRUSEMIDE (FUROSEMIDE) [Concomitant]
     Route: 065

REACTIONS (5)
  - Hypovolaemic shock [Fatal]
  - Gastrointestinal haemorrhage [Not Recovered/Not Resolved]
  - Hypotension [Not Recovered/Not Resolved]
  - Rectal haemorrhage [Not Recovered/Not Resolved]
  - Drug prescribing error [Unknown]
